FAERS Safety Report 5889292-X (Version None)
Quarter: 2008Q3

REPORT INFORMATION
  Report Type: 
  Country: None (occurrence: None)
  Receive Date: 20080908
  Receipt Date: 20080825
  Transmission Date: 20090109
  Serious: Yes (Other)
  Sender: FDA-Public Use
  Company Number: THYM-1000762

PATIENT
  Sex: Female

DRUGS (1)
  1. THYMOGLOBULIN [Suspect]
     Indication: RENAL TRANSPLANT
     Dates: start: 20080801, end: 20080801

REACTIONS (3)
  - FULL BLOOD COUNT DECREASED [None]
  - RESPIRATORY DISTRESS [None]
  - VAGINAL HAEMORRHAGE [None]
